FAERS Safety Report 21046462 (Version 1)
Quarter: 2022Q3

REPORT INFORMATION
  Report Type: Spontaneous
  Country: US (occurrence: US)
  Receive Date: 20220706
  Receipt Date: 20220706
  Transmission Date: 20221027
  Serious: No
  Sender: FDA-Public Use
  Company Number: US-ALLERGAN-2213661US

PATIENT
  Age: 59 Year
  Sex: Female

DRUGS (10)
  1. UBRELVY [Suspect]
     Active Substance: UBROGEPANT
     Indication: Migraine
     Dosage: 1 TABLET 2 TIMES
     Route: 048
     Dates: start: 202204
  2. UBRELVY [Suspect]
     Active Substance: UBROGEPANT
     Dosage: 1 TABLET 4 TIMES
     Route: 048
     Dates: start: 202203, end: 202203
  3. UBRELVY [Suspect]
     Active Substance: UBROGEPANT
     Dosage: 1 TABLET 2 TIMES
     Route: 048
     Dates: start: 202202, end: 202202
  4. UBRELVY [Suspect]
     Active Substance: UBROGEPANT
     Dosage: UNK
     Route: 048
     Dates: start: 2020
  5. AIMOVIG [Concomitant]
     Active Substance: ERENUMAB-AOOE
     Indication: Migraine
     Dosage: 1 DF, Q MONTH
  6. NURTEC ODT [Concomitant]
     Active Substance: RIMEGEPANT SULFATE
     Indication: Migraine
     Route: 048
  7. IBUPROFEN [Concomitant]
     Active Substance: IBUPROFEN
     Indication: Migraine
     Dosage: UNK
     Route: 048
  8. VITAMIN B2 [Concomitant]
     Active Substance: RIBOFLAVIN
     Dosage: UNK
     Route: 048
  9. VITAMIN B3 [Concomitant]
     Active Substance: NIACIN
     Dosage: UNK
     Route: 048
  10. COENZYME Q10 [Concomitant]
     Active Substance: DIETARY SUPPLEMENT\UBIDECARENONE
     Dosage: UNK
     Route: 048

REACTIONS (2)
  - Blood creatinine increased [Not Recovered/Not Resolved]
  - Hepatic enzyme increased [Not Recovered/Not Resolved]

NARRATIVE: CASE EVENT DATE: 20220201
